FAERS Safety Report 7821184-9 (Version None)
Quarter: 2011Q4

REPORT INFORMATION
  Report Type: 
  Country: None (occurrence: None)
  Receive Date: 20111018
  Receipt Date: 20110215
  Transmission Date: 20120403
  Serious: No
  Sender: FDA-Public Use
  Company Number: US-ASTRAZENECA-2011SE08797

PATIENT
  Age: 80 Year
  Sex: Female
  Weight: 63.5 kg

DRUGS (7)
  1. SPRIVA [Concomitant]
  2. SYMBICORT [Suspect]
     Indication: CHRONIC OBSTRUCTIVE PULMONARY DISEASE
     Dosage: 160 UG DAILY
     Route: 055
     Dates: start: 20100101
  3. NASACORT [Concomitant]
  4. PRILOSEC [Concomitant]
  5. SYMBICORT [Suspect]
     Indication: ASTHMA
     Dosage: 160 UG DAILY
     Route: 055
     Dates: start: 20100101
  6. FLOVENT [Concomitant]
  7. PROAIR HFA [Concomitant]

REACTIONS (2)
  - HERPES ZOSTER [None]
  - DRUG DOSE OMISSION [None]
